FAERS Safety Report 4368306-2 (Version None)
Quarter: 2004Q2

REPORT INFORMATION
  Report Type: 
  Country: None (occurrence: None)
  Receive Date: 20040602
  Receipt Date: 20040524
  Transmission Date: 20050107
  Serious: Yes (Hospitalization)
  Sender: FDA-Public Use
  Company Number: PHFR2004GB02216

PATIENT
  Age: 62 Year
  Sex: Male

DRUGS (6)
  1. DICLOFENAC [Suspect]
     Indication: ARTHRITIS
     Dosage: 25-50 MG TID
     Route: 048
     Dates: end: 20040414
  2. WARFARIN SODIUM [Suspect]
     Indication: ATRIAL FIBRILLATION
     Route: 048
     Dates: start: 20010501
  3. DIGOXIN [Concomitant]
     Indication: ATRIAL FIBRILLATION
     Dosage: 125 UG, QD
     Route: 048
  4. RAMIPRIL [Concomitant]
     Dosage: 10 MG, QD
     Route: 048
     Dates: start: 20020101
  5. GLUCOSAMINE [Concomitant]
     Indication: ARTHRITIS
     Route: 048
     Dates: start: 20040101, end: 20040303
  6. ACETAMINOPHEN [Concomitant]
     Indication: HEADACHE
     Dosage: 1 G, QID
     Route: 048

REACTIONS (5)
  - CIRCULATORY COLLAPSE [None]
  - FATIGUE [None]
  - HAEMATEMESIS [None]
  - HAEMOGLOBIN DECREASED [None]
  - WHITE BLOOD CELL COUNT INCREASED [None]
